FAERS Safety Report 10569356 (Version 2)
Quarter: 2015Q1

REPORT INFORMATION
  Report Type: Spontaneous
  Country: US (occurrence: US)
  Receive Date: 20141106
  Receipt Date: 20150218
  Transmission Date: 20150720
  Serious: Yes (Other)
  Sender: FDA-Public Use
  Company Number: US-ELI_LILLY_AND_COMPANY-US201410010883

PATIENT
  Age: 75 Year
  Sex: Female
  Weight: 85.26 kg

DRUGS (7)
  1. INSULIN HUMAN [Suspect]
     Active Substance: INSULIN HUMAN
     Dosage: 6 U, EACH EVENING
     Route: 058
     Dates: start: 20141026, end: 20141028
  2. INSULIN HUMAN [Suspect]
     Active Substance: INSULIN HUMAN
     Indication: TYPE 2 DIABETES MELLITUS
     Dosage: UNK
     Route: 058
     Dates: start: 2010
  3. IBUPROFEN. [Concomitant]
     Active Substance: IBUPROFEN
  4. INSULIN HUMAN [Suspect]
     Active Substance: INSULIN HUMAN
     Dosage: 8 U, QD
     Route: 058
     Dates: start: 20141026, end: 20141028
  5. INSULIN HUMAN [Suspect]
     Active Substance: INSULIN HUMAN
     Dosage: 6 U, EACH MORNING
     Route: 058
     Dates: start: 20141026, end: 20141028
  6. TYLENOL [Concomitant]
     Active Substance: ACETAMINOPHEN
  7. FASLODEX [Concomitant]
     Active Substance: FULVESTRANT

REACTIONS (13)
  - Dyspepsia [Unknown]
  - Dysgeusia [Unknown]
  - Hyperhidrosis [Unknown]
  - Dysgeusia [Unknown]
  - Decreased appetite [Unknown]
  - Vomiting [Unknown]
  - Dry mouth [Unknown]
  - Dry throat [Unknown]
  - Tremor [Unknown]
  - Renal neoplasm [Unknown]
  - Glycosylated haemoglobin increased [Unknown]
  - Malaise [Unknown]
  - Diarrhoea [Unknown]

NARRATIVE: CASE EVENT DATE: 20141027
